FAERS Safety Report 9826106 (Version 1)
Quarter: 2013Q4

REPORT INFORMATION
  Report Type: Spontaneous
  Country: US (occurrence: None)
  Receive Date: 20131104
  Receipt Date: 20131104
  Transmission Date: 20140711
  Serious: Yes (Other)
  Sender: FDA-Public Use
  Company Number: 1000046862

PATIENT
  Age: 69 Year
  Sex: Female

DRUGS (9)
  1. DALIRESP [Suspect]
     Indication: CHRONIC OBSTRUCTIVE PULMONARY DISEASE
     Dosage: 500 MCG (500 MC, 1 IN 1 D), ORAL
     Route: 048
     Dates: start: 20130712, end: 20130726
  2. PREDNISONE (PREDNISONE) (PREDNISONE) [Concomitant]
  3. SYMBICORT (BUDESONIDE W/FORMOTEROL FORMOTEROL FUMARATE) (BUDESONIDE W/FORMOTEROL FUMARATE) [Concomitant]
  4. ALBUTEROL (ALBUTEROL) (ALBUTEROL) [Concomitant]
  5. MULTAQ (DRONEDARONE HYDROCHLORIDE) (DRONEDARONE HYDROCHLORIDE)? [Concomitant]
  6. CLONAZEPAM (CLONAZEPAM) (CLONAZEPAM) [Concomitant]
  7. SINGULAIR (MONTELUKAST SODIUM) (MONTELUKAST SODIUM) [Concomitant]
  8. TUMS (CALCIUM CARBONATE) (CALCIUM CARBONATE) [Concomitant]
  9. IPRATROPIUM (IPRATROPIUM) (IPRATROPIUM) [Concomitant]

REACTIONS (2)
  - Palpitations [None]
  - Dyspnoea [None]
